FAERS Safety Report 5556827-6 (Version None)
Quarter: 2007Q4

REPORT INFORMATION
  Report Type: 
  Country: None (occurrence: None)
  Receive Date: 20071211
  Receipt Date: 20071211
  Transmission Date: 20080405
  Serious: Yes (Life-Threatening, Hospitalization)
  Sender: FDA-Public Use
  Company Number: None

PATIENT
  Age: 16 Year
  Sex: Female
  Weight: 61.7 kg

DRUGS (2)
  1. LAMOTRIGINE [Suspect]
     Indication: SCHIZOAFFECTIVE DISORDER
     Dosage: 75 MG DAILY PO
     Route: 048
     Dates: start: 20070307, end: 20071109
  2. LAMOTRIGINE [Suspect]
     Indication: SCHIZOAFFECTIVE DISORDER
     Dosage: 75 MG DAILY PO
     Route: 048
     Dates: start: 20071116, end: 20071204

REACTIONS (3)
  - BLOOD DISORDER [None]
  - PYREXIA [None]
  - RENAL FAILURE ACUTE [None]
